FAERS Safety Report 22260887 (Version 1)
Quarter: 2023Q2

REPORT INFORMATION
  Report Type: Spontaneous
  Country: US (occurrence: US)
  Receive Date: 20230427
  Receipt Date: 20230427
  Transmission Date: 20230722
  Serious: Yes (Hospitalization)
  Sender: FDA-Public Use
  Company Number: US-CARA THERAPEUTICS, INC.-2023-00120-US

PATIENT

DRUGS (16)
  1. KORSUVA [Suspect]
     Active Substance: DIFELIKEFALIN ACETATE
     Indication: Pruritus
     Dosage: 1 MILLILITER, TIW AFTER EACH DIALYSIS TREATMENT
     Route: 042
     Dates: start: 20230105, end: 202302
  2. KORSUVA [Suspect]
     Active Substance: DIFELIKEFALIN ACETATE
     Dosage: 1 MILLILITER, TIW AFTER EACH DIALYSIS TREATMENT
     Route: 042
     Dates: start: 20230228
  3. HEPARIN [Concomitant]
     Active Substance: HEPARIN SODIUM
     Indication: Prophylaxis
     Dosage: 2000UNITS BOLUS WITH EACH DIALYSIS TREATMENT
     Dates: end: 20230415
  4. LIQUACEL [Concomitant]
     Indication: Blood albumin decreased
     Dosage: 30ML
     Dates: start: 20211022
  5. MIRCERA [Concomitant]
     Active Substance: METHOXY POLYETHYLENE GLYCOL-EPOETIN BETA
     Indication: Anaemia
     Dosage: 125MCG EVERY OTHER WEEK, CHANGE DOSAGE BASED ON BLOOD WORK RESULT
     Dates: start: 20230320
  6. AMLODIPINE [Concomitant]
     Active Substance: AMLODIPINE BESYLATE
     Indication: Product used for unknown indication
     Dosage: 10MG DAILY
  7. FOLIC ACID [Concomitant]
     Active Substance: FOLIC ACID
     Indication: Folate deficiency
     Dosage: 1 TAB A DAY
  8. BUSPAR [Concomitant]
     Active Substance: BUSPIRONE HYDROCHLORIDE
     Indication: Anxiety
     Dosage: 5 MG, 3 TIMES A WEEK WITH DIALYSIS
     Dates: start: 20220402
  9. CALCITRIOL [Concomitant]
     Active Substance: CALCITRIOL
     Indication: Hyperparathyroidism
     Dosage: 0.5MCG 3X/WEEK TITRATED WITH BLOOD WORK
     Dates: start: 20220402
  10. CINACALCET [Concomitant]
     Active Substance: CINACALCET
     Indication: Hyperparathyroidism
     Dosage: 60 MILLIGRAM, QD
     Dates: start: 20220720
  11. CARVEDILOL [Concomitant]
     Active Substance: CARVEDILOL
     Indication: Hypertension
     Dosage: 3.125MG 2 TIMES A DAY
  12. MIRAPEX [Concomitant]
     Active Substance: PRAMIPEXOLE DIHYDROCHLORIDE
     Indication: Restless legs syndrome
     Dosage: 0.125MG EVERY NIGHT
     Dates: start: 20220510
  13. PHOSLO [Concomitant]
     Active Substance: CALCIUM ACETATE
     Indication: Hyperphosphataemia
     Dosage: 667MG 3TABS 3X/DAY WITH MEALS
     Dates: start: 20221222
  14. SYNTHROID [Concomitant]
     Active Substance: LEVOTHYROXINE SODIUM
     Indication: Hypothyroidism
     Dosage: 0.125 DAILY
  15. VITAMIN D NOS [Concomitant]
     Active Substance: VITAMIN D NOS
     Indication: Vitamin D deficiency
     Dosage: 5000 UNITS DAILY
  16. VENOFER [Concomitant]
     Active Substance: IRON SUCROSE
     Indication: Iron deficiency
     Dosage: 15MG ONCE A WEEK
     Dates: start: 20230313

REACTIONS (2)
  - Dyspnoea [Recovered/Resolved]
  - Hypervolaemia [Unknown]

NARRATIVE: CASE EVENT DATE: 20230101
